FAERS Safety Report 6013494-5 (Version None)
Quarter: 2008Q4

REPORT INFORMATION
  Report Type: 
  Country: None (occurrence: None)
  Receive Date: 20081219
  Receipt Date: 20081208
  Transmission Date: 20090506
  Serious: Yes (Hospitalization, Other)
  Sender: FDA-Public Use
  Company Number: BR-NOVOPROD-281680

PATIENT
  Sex: Female

DRUGS (4)
  1. GLUCAGEN [Suspect]
     Indication: HYPOGLYCAEMIC UNCONSCIOUSNESS
     Dosage: 1 MG, UNK
     Dates: start: 19740101
  2. INSULIN GLARGINE [Concomitant]
     Dosage: .5 U, UNK
     Dates: start: 20080801, end: 20080801
  3. GLUCOSE [Concomitant]
  4. INSULIN [Concomitant]

REACTIONS (4)
  - BLOOD GLUCOSE FLUCTUATION [None]
  - HYPERGLYCAEMIA [None]
  - HYPOGLYCAEMIA [None]
  - MUNCHAUSEN'S SYNDROME [None]
